FAERS Safety Report 16429854 (Version 1)
Quarter: 2019Q2

REPORT INFORMATION
  Report Type: Spontaneous
  Country: NL (occurrence: NL)
  Receive Date: 20190614
  Receipt Date: 20190614
  Transmission Date: 20190711
  Serious: Yes (Other)
  Sender: FDA-Public Use
  Company Number: NL-TEVA-2019-NL-1062475

PATIENT
  Age: 30 Year
  Sex: Female
  Weight: 62 kg

DRUGS (1)
  1. MIRTAZAPINE TABLET 15MG [Suspect]
     Active Substance: MIRTAZAPINE
     Indication: ANXIETY
     Dosage: 15 MILLIGRAM DAILY;
     Dates: start: 200808

REACTIONS (3)
  - Sleep disorder [Not Recovered/Not Resolved]
  - Therapeutic response unexpected [Recovered/Resolved]
  - Apnoeic attack [Not Recovered/Not Resolved]

NARRATIVE: CASE EVENT DATE: 200809
